FAERS Safety Report 24184544 (Version 2)
Quarter: 2024Q3

REPORT INFORMATION
  Report Type: Spontaneous
  Country: PT (occurrence: PT)
  Receive Date: 20240807
  Receipt Date: 20240821
  Transmission Date: 20241017
  Serious: Yes (Hospitalization, Other)
  Sender: PURDUE
  Company Number: PT-TEVA-VS-3222513

PATIENT
  Age: 63 Year
  Sex: Female

DRUGS (2)
  1. MORPHINE SULFATE [Suspect]
     Active Substance: MORPHINE SULFATE
     Indication: Pain
     Dosage: UNKNOWN
     Route: 065
  2. FENTANYL [Suspect]
     Active Substance: FENTANYL\FENTANYL CITRATE
     Indication: Pain
     Dosage: UNKNOWN
     Route: 065

REACTIONS (8)
  - Posterior reversible encephalopathy syndrome [Recovering/Resolving]
  - Stress cardiomyopathy [Recovering/Resolving]
  - Therapy cessation [Unknown]
  - Drug dependence [Unknown]
  - Intentional product misuse [Unknown]
  - Treatment noncompliance [Unknown]
  - Off label use [Unknown]
  - Drug withdrawal syndrome [Recovered/Resolved]
